FAERS Safety Report 4957327-4 (Version None)
Quarter: 2006Q1

REPORT INFORMATION
  Report Type: 
  Country: None (occurrence: None)
  Receive Date: 20060323
  Receipt Date: 20060313
  Transmission Date: 20060701
  Serious: Yes (Hospitalization)
  Sender: FDA-Public Use
  Company Number: US200603003189

PATIENT
  Age: 75 Year
  Sex: Male
  Weight: 63.4 kg

DRUGS (8)
  1. ALIMTA [Suspect]
     Indication: NON-SMALL CELL LUNG CANCER
     Dosage: INTRAVENOUS
     Route: 042
  2. TOPROL-XL [Concomitant]
  3. COMPAZINE [Concomitant]
  4. LASIX (FUROSEMIDE, FUROSEMIDE SODIUM) [Concomitant]
  5. K-TAB [Concomitant]
  6. LANOXIN [Concomitant]
  7. VITAMIN B12 [Concomitant]
  8. FOLIC ACID [Concomitant]

REACTIONS (20)
  - ABDOMINAL PAIN [None]
  - ANAEMIA [None]
  - BLOOD ALKALINE PHOSPHATASE INCREASED [None]
  - CARDIOACTIVE DRUG LEVEL INCREASED [None]
  - DEHYDRATION [None]
  - DIFFICULTY IN WALKING [None]
  - DISORIENTATION [None]
  - DYSURIA [None]
  - MENTAL STATUS CHANGES [None]
  - NAUSEA [None]
  - PNEUMONIA ASPIRATION [None]
  - POLLAKIURIA [None]
  - POST PROCEDURAL COMPLICATION [None]
  - RASH GENERALISED [None]
  - RESPIRATORY DISTRESS [None]
  - STOMATITIS [None]
  - STRESS [None]
  - TACHYCARDIA [None]
  - URINARY TRACT INFECTION [None]
  - VOMITING [None]
